FAERS Safety Report 26156955 (Version 1)
Quarter: 2025Q4

REPORT INFORMATION
  Report Type: Spontaneous
  Country: US (occurrence: None)
  Receive Date: 20251212
  Receipt Date: 20251212
  Transmission Date: 20260117
  Serious: Yes (Other)
  Sender: FDA-CTU
  Company Number: None

PATIENT
  Age: 53 Year
  Sex: Female
  Weight: 72.9 kg

DRUGS (9)
  1. CYANOCOBALAMIN\NADIDE\SEMAGLUTIDE [Suspect]
     Active Substance: CYANOCOBALAMIN\NADIDE\SEMAGLUTIDE
     Indication: Weight control
     Dosage: OTHER QUANTITY : 1 INJECTION(S);?OTHER FREQUENCY : 1 PER WEEK;
     Route: 058
     Dates: start: 20250522, end: 20251013
  2. Diltiazem 24h 120 mg cp [Concomitant]
  3. SYNTHROID [Concomitant]
     Active Substance: LEVOTHYROXINE SODIUM
  4. HYDROCHLOROTHIAZIDE [Concomitant]
     Active Substance: HYDROCHLOROTHIAZIDE
  5. Magnesium 400 mg [Concomitant]
  6. D3 50 mcg [Concomitant]
  7. B6 100 mg [Concomitant]
  8. B12 3000 mcg [Concomitant]
  9. Iron 65 mg [Concomitant]

REACTIONS (1)
  - Triple negative breast cancer [None]

NARRATIVE: CASE EVENT DATE: 20251023
